FAERS Safety Report 6102325-0 (Version None)
Quarter: 2009Q1

REPORT INFORMATION
  Report Type: 
  Country: None (occurrence: None)
  Receive Date: 20090227
  Receipt Date: 20080811
  Transmission Date: 20090719
  Serious: Yes (Other)
  Sender: FDA-Public Use
  Company Number: 580353

PATIENT
  Age: 16 Year
  Sex: Male

DRUGS (3)
  1. ACCUTANE [Suspect]
     Indication: ACNE
     Dosage: 40 MG DAILY ORAL
     Route: 048
  2. PREVACID [Concomitant]
  3. IMURAN [Concomitant]

REACTIONS (1)
  - PANCREATITIS [None]
